FAERS Safety Report 25186451 (Version 3)
Quarter: 2025Q2

REPORT INFORMATION
  Report Type: Spontaneous
  Country: CZ (occurrence: CZ)
  Receive Date: 20250411
  Receipt Date: 20250523
  Transmission Date: 20250716
  Serious: Yes (Other)
  Sender: EMD SERONO INC
  Company Number: CZ-Merck Healthcare KGaA-2025017089

PATIENT
  Age: 11 Year
  Sex: Female
  Weight: 62 kg

DRUGS (1)
  1. SAIZEN [Suspect]
     Active Substance: SOMATROPIN
     Indication: Growth hormone deficiency
     Dosage: LONG-TERM MEDICATION?EXPIRY DATE: OCT-2026?SN: 429207598333
     Dates: start: 20230730, end: 20250323

REACTIONS (1)
  - Malignant melanoma [Recovered/Resolved]
